FAERS Safety Report 9795319 (Version 1)
Quarter: 2014Q1

REPORT INFORMATION
  Report Type: Spontaneous
  Country: US (occurrence: US)
  Receive Date: 20140103
  Receipt Date: 20140103
  Transmission Date: 20141002
  Serious: Yes (Other)
  Sender: FDA-Public Use
  Company Number: US-ROCHE-1324874

PATIENT
  Sex: Female

DRUGS (2)
  1. INTERFERON ALFA-2A [Suspect]
     Indication: HEPATITIS C
     Route: 065
  2. INSULIN [Concomitant]

REACTIONS (6)
  - Myocardial infarction [Unknown]
  - Gallbladder perforation [Recovered/Resolved]
  - Memory impairment [Not Recovered/Not Resolved]
  - Sinusitis [Unknown]
  - Cardiac murmur [Unknown]
  - Feeling abnormal [Unknown]
